FAERS Safety Report 6421546-0 (Version None)
Quarter: 2009Q4

REPORT INFORMATION
  Report Type: 
  Country: None (occurrence: None)
  Receive Date: 20091030
  Receipt Date: 20091020
  Transmission Date: 20100525
  Serious: Yes (Death)
  Sender: FDA-Public Use
  Company Number: JP-PFIZER INC-2009280808

PATIENT
  Age: 79 Year

DRUGS (6)
  1. LINEZOLID [Suspect]
     Indication: SEPSIS
     Dosage: 600 MG, 2X/DAY
     Route: 042
     Dates: start: 20081208, end: 20081214
  2. HICALIQ [Concomitant]
     Dosage: UNK
     Route: 042
     Dates: start: 20081208, end: 20081213
  3. VITAJECT [Concomitant]
     Dosage: UNK
     Route: 042
     Dates: start: 20081208, end: 20081213
  4. ELEMENMIC [Concomitant]
     Dosage: UNK
     Route: 042
     Dates: start: 20081208, end: 20081213
  5. SOLU-CORTEF [Concomitant]
     Dosage: UNK
     Route: 042
     Dates: start: 20081208, end: 20081213
  6. FOY [Concomitant]
     Dosage: UNK
     Route: 042
     Dates: start: 20081208, end: 20081213

REACTIONS (1)
  - ACUTE RESPIRATORY DISTRESS SYNDROME [None]
